FAERS Safety Report 9638739 (Version 1)
Quarter: 2013Q4

REPORT INFORMATION
  Report Type: Spontaneous
  Country: US (occurrence: US)
  Receive Date: 20131022
  Receipt Date: 20131022
  Transmission Date: 20140711
  Serious: No
  Sender: FDA-Public Use
  Company Number: US-BRISTOL-MYERS SQUIBB COMPANY-19227693

PATIENT
  Sex: Male

DRUGS (1)
  1. ELIQUIS [Suspect]
     Dosage: TABS
     Dates: start: 20130826

REACTIONS (4)
  - Fatigue [Unknown]
  - Feeling abnormal [Unknown]
  - Malaise [Unknown]
  - Drug administration error [Unknown]
